FAERS Safety Report 9094447 (Version 1)
Quarter: 2013Q1

REPORT INFORMATION
  Report Type: Report from Study
  Country: US (occurrence: US)
  Receive Date: 20130131
  Receipt Date: 20130131
  Transmission Date: 20140127
  Serious: No
  Sender: FDA-Public Use
  Company Number: US-ABBOTT-12P-163-0980369-00

PATIENT
  Age: 63 Year
  Sex: Male

DRUGS (1)
  1. HUMIRA [Suspect]
     Indication: RHEUMATOID ARTHRITIS
     Route: 058
     Dates: start: 201208, end: 20120821

REACTIONS (3)
  - Swelling [Not Recovered/Not Resolved]
  - Orchitis [Not Recovered/Not Resolved]
  - Inflammation [Not Recovered/Not Resolved]
